FAERS Safety Report 9803025 (Version 1)
Quarter: 2014Q1

REPORT INFORMATION
  Report Type: Spontaneous
  Country: TR (occurrence: TR)
  Receive Date: 20140108
  Receipt Date: 20140108
  Transmission Date: 20141002
  Serious: Yes (Other)
  Sender: FDA-Public Use
  Company Number: TR-JNJFOC-20131218219

PATIENT
  Sex: Male

DRUGS (10)
  1. METHYLPHENIDATE HCL [Suspect]
     Indication: ATTENTION DEFICIT/HYPERACTIVITY DISORDER
     Route: 048
  2. RISPERIDONE [Suspect]
     Indication: STEREOTYPY
     Route: 065
  3. RISPERIDONE [Suspect]
     Indication: IMPULSIVE BEHAVIOUR
     Route: 065
  4. RISPERIDONE [Suspect]
     Indication: AGGRESSION
     Route: 065
  5. HALOPERIDOL [Suspect]
     Indication: STEREOTYPY
     Route: 065
  6. HALOPERIDOL [Suspect]
     Indication: IMPULSIVE BEHAVIOUR
     Route: 065
  7. HALOPERIDOL [Suspect]
     Indication: AGGRESSION
     Route: 065
  8. QUETIAPINE [Suspect]
     Indication: STEREOTYPY
     Route: 065
  9. QUETIAPINE [Suspect]
     Indication: IMPULSIVE BEHAVIOUR
     Route: 065
  10. QUETIAPINE [Suspect]
     Indication: AGGRESSION
     Route: 065

REACTIONS (3)
  - Suicide attempt [Unknown]
  - Weight increased [Recovered/Resolved]
  - Sedation [Recovered/Resolved]
